FAERS Safety Report 8788618 (Version 1)
Quarter: 2012Q4

REPORT INFORMATION
  Report Type: 
  Country: US (occurrence: US)
  Receive Date: 20120915
  Receipt Date: 20120915
  Transmission Date: 20130627
  Serious: Yes (Disabling, Other)
  Sender: FDA-Public Use
  Company Number: US-009507513-1205USA00734

PATIENT

DRUGS (15)
  1. FOSAMAX [Suspect]
     Dosage: UNK
     Route: 048
     Dates: start: 200810, end: 200905
  2. FORTEO [Suspect]
     Indication: OSTEOPOROSIS
     Dosage: 20 ?g, qd
     Dates: start: 20100512, end: 201111
  3. FORTEO [Suspect]
     Dosage: 20 ?g, qd
     Dates: start: 20120226, end: 20120226
  4. CALCIUM (UNSPECIFIED) [Concomitant]
  5. METICORTEN [Concomitant]
     Route: 047
  6. DUREZOL [Concomitant]
  7. HYDROXYCHLOROQUINE SULFATE [Concomitant]
  8. EFFEXOR [Concomitant]
  9. MINOCYCLINE [Concomitant]
  10. ACYCLOVIR [Concomitant]
  11. CYCLOSPORINE [Concomitant]
  12. METOPROLOL [Concomitant]
  13. ASPIRIN [Concomitant]
  14. PLAQUENIL [Concomitant]
     Indication: ARTHRITIS
  15. RECLAST [Suspect]
     Dosage: 1 DF, Once
     Dates: start: 200905, end: 200905

REACTIONS (15)
  - Hip fracture [Recovered/Resolved]
  - Fall [Unknown]
  - Calcinosis [Unknown]
  - Hand fracture [Recovered/Resolved]
  - Fall [Unknown]
  - Hip fracture [Recovered/Resolved]
  - Jaw fracture [Unknown]
  - Herpes zoster [Unknown]
  - Conjunctivitis infective [Unknown]
  - Corneal disorder [Unknown]
  - Osteoarthritis [Unknown]
  - Blood calcium increased [Unknown]
  - Blood calcium increased [Recovered/Resolved]
  - Drug ineffective [Unknown]
  - Hip fracture [Unknown]
